FAERS Safety Report 11755071 (Version 1)
Quarter: 2015Q4

REPORT INFORMATION
  Report Type: Report from Study
  Country: FR (occurrence: FR)
  Receive Date: 20151119
  Receipt Date: 20151119
  Transmission Date: 20160304
  Serious: Yes (Disabling)
  Sender: FDA-Public Use
  Company Number: FR-ASTRAZENECA-2015SE88857

PATIENT
  Age: 918 Month
  Sex: Female
  Weight: 63 kg

DRUGS (5)
  1. PINAVERIUM [Concomitant]
     Active Substance: PINAVERIUM BROMIDE
     Indication: DIARRHOEA
  2. TAGRISSO [Suspect]
     Active Substance: OSIMERTINIB
     Indication: NON-SMALL CELL LUNG CANCER METASTATIC
     Route: 048
     Dates: start: 20150810
  3. LORMETAZEPAM [Concomitant]
     Active Substance: LORMETAZEPAM
  4. PANTOPRAZOLE [Concomitant]
     Active Substance: PANTOPRAZOLE SODIUM
  5. GELOX [Concomitant]
     Active Substance: ALUMINUM HYDROXIDE\MAGNESIUM HYDROXIDE\MONTMORILLONITE
     Indication: HIATUS HERNIA

REACTIONS (1)
  - Tendonitis [Recovered/Resolved]

NARRATIVE: CASE EVENT DATE: 201508
